FAERS Safety Report 6516077-3 (Version None)
Quarter: 2009Q4

REPORT INFORMATION
  Report Type: 
  Country: None (occurrence: None)
  Receive Date: 20091223
  Receipt Date: 20091208
  Transmission Date: 20100525
  Serious: No
  Sender: FDA-Public Use
  Company Number: US-ABBOTT-09P-163-0613885-00

PATIENT
  Sex: Male
  Weight: 78.088 kg

DRUGS (6)
  1. LUPRON DEPOT [Suspect]
     Indication: PROSTATE CANCER
     Dates: start: 20080101
  2. AVODART [Concomitant]
     Indication: PROSTATE CANCER
  3. CARAFATE [Concomitant]
     Indication: DYSPHAGIA
  4. ACIPHEX [Concomitant]
     Indication: DYSPHAGIA
  5. HYDROXYZINE [Concomitant]
     Indication: DRUG USE FOR UNKNOWN INDICATION
  6. VITAMIN B-12 [Concomitant]
     Indication: HYPOVITAMINOSIS

REACTIONS (1)
  - RASH [None]
